FAERS Safety Report 4382483-9 (Version None)
Quarter: 2004Q2

REPORT INFORMATION
  Report Type: 
  Country: None (occurrence: None)
  Receive Date: 20040621
  Receipt Date: 20040621
  Transmission Date: 20050107
  Serious: Yes (Other)
  Sender: FDA-Public Use
  Company Number: None

PATIENT
  Age: 37 Year
  Sex: Female
  Weight: 50.8029 kg

DRUGS (1)
  1. DEFEROXAMINE 2000 MG HOSPIRA [Suspect]
     Dosage: 4000 MG 5 NIGHTS/SUBCUTANEOUS
     Route: 058
     Dates: start: 20040601, end: 20040617

REACTIONS (4)
  - INJECTION SITE ABSCESS [None]
  - INJECTION SITE DISCOLOURATION [None]
  - INJECTION SITE HAEMORRHAGE [None]
  - INJECTION SITE PAIN [None]
